FAERS Safety Report 9379222 (Version 2)
Quarter: 2013Q3

REPORT INFORMATION
  Report Type: Spontaneous
  Country: KR (occurrence: KR)
  Receive Date: 20130702
  Receipt Date: 20130910
  Transmission Date: 20140515
  Serious: Yes (Hospitalization)
  Sender: FDA-Public Use
  Company Number: KR-ASTELLAS-2013JP005833

PATIENT
  Age: 78 Year
  Sex: Female

DRUGS (3)
  1. VESICARE [Suspect]
     Dosage: 10 MG, UNKNOWN/D
     Route: 048
     Dates: start: 201211, end: 201306
  2. ANTIHYPERTENSIVES [Concomitant]
     Indication: HYPERTENSION
     Route: 065
  3. MEDICINE FOR ARTHRITIS [Concomitant]
     Indication: ARTHRITIS
     Route: 065

REACTIONS (2)
  - Gait disturbance [Recovered/Resolved]
  - Gait disturbance [Recovered/Resolved]
